FAERS Safety Report 9601850 (Version 1)
Quarter: 2013Q4

REPORT INFORMATION
  Report Type: Spontaneous
  Country: IT (occurrence: IT)
  Receive Date: 20131007
  Receipt Date: 20131007
  Transmission Date: 20140711
  Serious: Yes (Other)
  Sender: FDA-Public Use
  Company Number: IT-ACCORD-019666

PATIENT
  Sex: 0
  Weight: 2.4 kg

DRUGS (2)
  1. ALPRAZOLAM [Suspect]
     Indication: PRODUCT USED FOR UNKNOWN INDICATION
     Route: 064
  2. ESCITALOPRAM [Suspect]
     Indication: PANIC DISORDER
     Route: 064

REACTIONS (2)
  - Underweight [Unknown]
  - Foetal exposure during pregnancy [Unknown]
